FAERS Safety Report 19783052 (Version 1)
Quarter: 2021Q3

REPORT INFORMATION
  Report Type: Report from Study
  Country: US (occurrence: US)
  Receive Date: 20210902
  Receipt Date: 20210902
  Transmission Date: 20211014
  Serious: Yes (Hospitalization, Other)
  Sender: FDA-Public Use
  Company Number: US-GILEAD-2021-0544806

PATIENT
  Age: 55 Year
  Sex: Female

DRUGS (1)
  1. SACITUZUMAB GOVITECAN. [Suspect]
     Active Substance: SACITUZUMAB GOVITECAN
     Indication: BREAST CANCER
     Dosage: 890 MG, OVER 1 HOUR ON DAYS 1 AND 8 EVERY 21 DAYS
     Route: 042
     Dates: start: 20210726

REACTIONS (2)
  - Abdominal pain upper [Unknown]
  - Thrombosis [Unknown]
